FAERS Safety Report 12507742 (Version 2)
Quarter: 2016Q2

REPORT INFORMATION
  Report Type: Spontaneous
  Country: US (occurrence: US)
  Receive Date: 20160629
  Receipt Date: 20160630
  Transmission Date: 20160815
  Serious: No
  Sender: FDA-Public Use
  Company Number: US-PFIZER INC-2016286398

PATIENT
  Sex: Male

DRUGS (1)
  1. TIKOSYN [Suspect]
     Active Substance: DOFETILIDE
     Indication: CARDIOVERSION
     Dosage: 250 UG, 2X/DAY
     Dates: start: 2009

REACTIONS (2)
  - Dysgeusia [Unknown]
  - Parosmia [Unknown]
